FAERS Safety Report 15350190 (Version 1)
Quarter: 2018Q3

REPORT INFORMATION
  Report Type: Spontaneous
  Country: FR (occurrence: FR)
  Receive Date: 20180905
  Receipt Date: 20180905
  Transmission Date: 20181010
  Serious: Yes (Hospitalization, Other)
  Sender: FDA-Public Use
  Company Number: FR-ASTELLAS-2018US030502

PATIENT
  Age: 70 Year
  Sex: Female
  Weight: 110 kg

DRUGS (11)
  1. PROGRAF [Suspect]
     Active Substance: TACROLIMUS\TACROLIMUS ANHYDROUS
     Indication: TRANSPLANT REJECTION
     Dosage: 2 MG, TWICE DAILY (2 MG IN THE MORNING AND 2 MG IN THE EVENING)
     Route: 048
     Dates: start: 20180710
  2. COLCHICIN [Interacting]
     Active Substance: COLCHICINE
     Indication: GOUT
     Dosage: UNK UNK, UNKNOWN FREQ.
     Route: 065
     Dates: start: 20180619
  3. CICLOSPORIN [Concomitant]
     Active Substance: CYCLOSPORINE
     Indication: PRODUCT USED FOR UNKNOWN INDICATION
     Dosage: UNK UNK, UNKNOWN FREQ.
     Route: 065
  4. SKENAN [Concomitant]
     Active Substance: MORPHINE SULFATE
     Indication: PRODUCT USED FOR UNKNOWN INDICATION
     Dosage: UNK UNK, AS NEEDED (1 IN THE MORNING AND EVENING)
     Route: 065
  5. ACTISKENAN [Concomitant]
     Active Substance: MORPHINE SULFATE
     Indication: PRODUCT USED FOR UNKNOWN INDICATION
     Dosage: UNK UNK, AS NEEDED (1 IN THE MORNING AND EVENING)
     Route: 065
  6. LAMALINE                           /00764901/ [Concomitant]
     Active Substance: ACETAMINOPHEN\BELLADONNA LEAF\CAFFEINE\OPIUM
     Indication: PRODUCT USED FOR UNKNOWN INDICATION
     Dosage: UNK UNK, AS NEEDED
     Route: 065
  7. PROGRAF [Interacting]
     Active Substance: TACROLIMUS\TACROLIMUS ANHYDROUS
     Dosage: 1 MG, TWICE DAILY (1 MG IN THE MORNING AND 1 MG IN THE EVENING)
     Route: 065
  8. FUROSEMIDE. [Concomitant]
     Active Substance: FUROSEMIDE
     Indication: PRODUCT USED FOR UNKNOWN INDICATION
     Dosage: 40 MG, 1 IN THE MORNING, 1 ? IN THE EVENING
     Route: 065
  9. DOLIPRANE [Concomitant]
     Active Substance: ACETAMINOPHEN
     Indication: PRODUCT USED FOR UNKNOWN INDICATION
     Dosage: UNK UNK, AS NEEDED
     Route: 065
  10. ALLOPURINOL. [Concomitant]
     Active Substance: ALLOPURINOL
     Indication: PRODUCT USED FOR UNKNOWN INDICATION
     Dosage: 200 MG, 1 IN THE EVENING
     Route: 065
  11. SOTALOL. [Concomitant]
     Active Substance: SOTALOL
     Indication: PRODUCT USED FOR UNKNOWN INDICATION
     Dosage: 80 MG, 1 IN THE MORNING AND EVENING
     Route: 065

REACTIONS (17)
  - Metrorrhagia [Recovering/Resolving]
  - Cholestasis [Unknown]
  - Fistula [Unknown]
  - Depression [Unknown]
  - Drug interaction [Unknown]
  - Uterine leiomyoma [Recovering/Resolving]
  - Myeloproliferative neoplasm [Not Recovered/Not Resolved]
  - Asthenia [Unknown]
  - Normocytic anaemia [Unknown]
  - General physical health deterioration [Unknown]
  - Gout [Unknown]
  - Fall [Unknown]
  - Haematoma [Unknown]
  - Malaise [Unknown]
  - Tremor [Unknown]
  - Acute kidney injury [Recovering/Resolving]
  - Thrombocytopenia [Unknown]

NARRATIVE: CASE EVENT DATE: 20180628
